FAERS Safety Report 6198615-6 (Version None)
Quarter: 2009Q2

REPORT INFORMATION
  Report Type: 
  Country: None (occurrence: None)
  Receive Date: 20090519
  Receipt Date: 20090519
  Transmission Date: 20091009
  Serious: Yes (Other)
  Sender: FDA-Public Use
  Company Number: None

PATIENT
  Age: 15 Month
  Sex: Male
  Weight: 11.3399 kg

DRUGS (1)
  1. AZITHROMYCIN [Suspect]
     Indication: SINUSITIS
     Dosage: 1TSP DAY 1, 0.5TSP DAY 2,3,4,5 1X PER DAY PO
     Route: 048
     Dates: start: 20090513, end: 20090515

REACTIONS (1)
  - RASH [None]
